FAERS Safety Report 5435138-3 (Version None)
Quarter: 2007Q3

REPORT INFORMATION
  Report Type: 
  Country: None (occurrence: None)
  Receive Date: 20070831
  Receipt Date: 20070820
  Transmission Date: 20080115
  Serious: No
  Sender: FDA-Public Use
  Company Number: A0670375A

PATIENT
  Age: 48 Year
  Weight: 66 kg

DRUGS (1)
  1. ALLI [Suspect]
     Dates: start: 20070614

REACTIONS (8)
  - ABDOMINAL DISTENSION [None]
  - CONSTIPATION [None]
  - DRUG INEFFECTIVE [None]
  - FLATULENCE [None]
  - GASTROINTESTINAL DISORDER [None]
  - INFREQUENT BOWEL MOVEMENTS [None]
  - MENSTRUAL DISORDER [None]
  - WEIGHT INCREASED [None]
